FAERS Safety Report 8895418 (Version 1)
Quarter: 2012Q4

REPORT INFORMATION
  Report Type: 
  Country: AT (occurrence: AT)
  Receive Date: 20121107
  Receipt Date: 20121107
  Transmission Date: 20130627
  Serious: Yes (Hospitalization, Other)
  Sender: FDA-Public Use
  Company Number: PHHY2012AT101325

PATIENT
  Age: 67 Year
  Sex: Female

DRUGS (1)
  1. FLECAINIDE [Suspect]
     Indication: ATRIAL FIBRILLATION
     Dosage: 100 mg, BID

REACTIONS (8)
  - Cardiac arrest [Recovered/Resolved]
  - Atrioventricular block second degree [Recovered/Resolved]
  - Pulseless electrical activity [Recovered/Resolved]
  - Electrocardiogram QRS complex prolonged [Recovered/Resolved]
  - Dyspnoea [Recovered/Resolved]
  - Syncope [Recovered/Resolved]
  - Drug level increased [Unknown]
  - Incorrect dose administered [Unknown]
